FAERS Safety Report 4742484-5 (Version None)
Quarter: 2005Q3

REPORT INFORMATION
  Report Type: 
  Country: None (occurrence: None)
  Receive Date: 20050810
  Receipt Date: 20050810
  Transmission Date: 20060218
  Serious: Yes (Hospitalization)
  Sender: FDA-Public Use
  Company Number: None

PATIENT
  Age: 74 Year
  Sex: Female

DRUGS (6)
  1. CEFUROXIME [Suspect]
     Indication: GASTROINTESTINAL INFECTION
     Dosage: 500 MG BID
     Dates: start: 20050607, end: 20050617
  2. . [Concomitant]
  3. . [Concomitant]
  4. . [Concomitant]
  5. . [Concomitant]
  6. . [Concomitant]

REACTIONS (1)
  - DIARRHOEA [None]
